FAERS Safety Report 9217619 (Version 1)
Quarter: 2013Q2

REPORT INFORMATION
  Report Type: Spontaneous
  Country: JP (occurrence: JP)
  Receive Date: 20130408
  Receipt Date: 20130408
  Transmission Date: 20140414
  Serious: Yes (Other)
  Sender: FDA-Public Use
  Company Number: JP-ROCHE-1210310

PATIENT
  Age: 9 Year
  Sex: Female
  Weight: 33.9 kg

DRUGS (2)
  1. PEGASYS [Suspect]
     Indication: PRODUCT USED FOR UNKNOWN INDICATION
     Route: 058
     Dates: start: 20090724, end: 20100616
  2. CALONAL [Concomitant]
     Indication: PYREXIA
     Dosage: A DOSE AT THERMACOGENESIS
     Route: 048
     Dates: start: 20090724, end: 20090724

REACTIONS (4)
  - Failure to thrive [Recovering/Resolving]
  - Pyrexia [Recovered/Resolved]
  - Decreased appetite [Recovering/Resolving]
  - Alopecia [Recovering/Resolving]
